FAERS Safety Report 13100794 (Version 1)
Quarter: 2017Q1

REPORT INFORMATION
  Report Type: Spontaneous
  Country: US (occurrence: US)
  Receive Date: 20170109
  Receipt Date: 20170109
  Transmission Date: 20170428
  Serious: Yes (Hospitalization)
  Sender: FDA-Public Use
  Company Number: None

PATIENT
  Age: 77 Year
  Sex: Male
  Weight: 122.4 kg

DRUGS (2)
  1. FUROSEMIDE. [Suspect]
     Active Substance: FUROSEMIDE
     Indication: CARDIAC FAILURE CONGESTIVE
     Route: 048
     Dates: start: 20160818
  2. METOLAZONE. [Suspect]
     Active Substance: METOLAZONE
     Indication: CARDIAC FAILURE CONGESTIVE
     Route: 048
     Dates: start: 20160818, end: 20160914

REACTIONS (3)
  - Palpitations [None]
  - Muscle spasms [None]
  - Hypokalaemia [None]

NARRATIVE: CASE EVENT DATE: 20160914
